FAERS Safety Report 6181037-1 (Version None)
Quarter: 2009Q2

REPORT INFORMATION
  Report Type: 
  Country: None (occurrence: None)
  Receive Date: 20090504
  Receipt Date: 20090504
  Transmission Date: 20091009
  Serious: Yes (Other)
  Sender: FDA-Public Use
  Company Number: None

PATIENT
  Age: 38 Year
  Sex: Male
  Weight: 61.2356 kg

DRUGS (4)
  1. PREDNISONE TAB [Suspect]
     Indication: NERVE COMPRESSION
     Dosage: 20 MG 3X3 DAYS, 2X3, 1X3  PO
     Route: 048
     Dates: start: 20080801, end: 20080809
  2. PREDNISONE TAB [Suspect]
     Indication: RASH
     Dosage: 20 MG 3X3 DAYS, 2X3, 1X3  PO
     Route: 048
     Dates: start: 20080801, end: 20080809
  3. PREDNISONE TAB [Suspect]
     Indication: NERVE COMPRESSION
     Dosage: 20 MG 3X3 DAYS, 2X3, 1X3  PO
     Route: 048
     Dates: start: 20090423, end: 20090501
  4. PREDNISONE TAB [Suspect]
     Indication: RASH
     Dosage: 20 MG 3X3 DAYS, 2X3, 1X3  PO
     Route: 048
     Dates: start: 20090423, end: 20090501

REACTIONS (3)
  - ARTHRALGIA [None]
  - NEURALGIA [None]
  - PAIN IN EXTREMITY [None]
